FAERS Safety Report 4900946-1 (Version None)
Quarter: 2006Q1

REPORT INFORMATION
  Report Type: 
  Country: None (occurrence: None)
  Receive Date: 20060203
  Receipt Date: 20050630
  Transmission Date: 20060701
  Serious: Yes (Hospitalization, Other)
  Sender: FDA-Public Use
  Company Number: US-MERCK-0507USA00147

PATIENT
  Age: 56 Year
  Sex: Female
  Weight: 75 kg

DRUGS (2)
  1. VIOXX [Suspect]
     Indication: RHEUMATOID ARTHRITIS
     Route: 048
     Dates: start: 19990101, end: 20040901
  2. VIOXX [Suspect]
     Indication: PAIN
     Route: 048
     Dates: start: 19990101, end: 20040901

REACTIONS (23)
  - ANAEMIA [None]
  - CAROTID BRUIT [None]
  - CATHETER RELATED INFECTION [None]
  - CEREBROVASCULAR ACCIDENT [None]
  - COUGH [None]
  - DEHYDRATION [None]
  - DEMENTIA [None]
  - DYSPNOEA [None]
  - EMOTIONAL DISORDER [None]
  - FAILURE TO THRIVE [None]
  - FALL [None]
  - HYPOTENSION [None]
  - LUNG DISORDER [None]
  - LUNG NEOPLASM [None]
  - MYOCARDIAL INFARCTION [None]
  - NAUSEA [None]
  - OTORRHOEA [None]
  - PAIN [None]
  - PELVIC FRACTURE [None]
  - PHARYNGOLARYNGEAL PAIN [None]
  - ROAD TRAFFIC ACCIDENT [None]
  - SYNCOPE [None]
  - VOMITING [None]
